FAERS Safety Report 9618989 (Version 8)
Quarter: 2015Q1

REPORT INFORMATION
  Report Type: Report from Study
  Country: US (occurrence: US)
  Receive Date: 20131014
  Receipt Date: 20150202
  Transmission Date: 20150721
  Serious: Yes (Hospitalization)
  Sender: FDA-Public Use
  Company Number: US-SA-2013SA100448

PATIENT
  Age: 35 Year
  Sex: Female
  Weight: 69.85 kg

DRUGS (10)
  1. AUBAGIO [Suspect]
     Active Substance: TERIFLUNOMIDE
     Indication: MULTIPLE SCLEROSIS
     Route: 048
     Dates: start: 20130820
  2. ALL OTHER THERAPEUTIC PRODUCTS [Concomitant]
     Active Substance: UNSPECIFIED INGREDIENT
     Indication: MULTIPLE SCLEROSIS
     Dates: start: 20140223
  3. AUBAGIO [Suspect]
     Active Substance: TERIFLUNOMIDE
     Indication: MULTIPLE SCLEROSIS
     Route: 048
     Dates: start: 20130820
  4. NAPROXEN. [Concomitant]
     Active Substance: NAPROXEN
     Dosage: STRENGTH: 500 MG
  5. CALCIUM CITRATE/VITAMIN D NOS [Concomitant]
  6. AUBAGIO [Suspect]
     Active Substance: TERIFLUNOMIDE
     Indication: MULTIPLE SCLEROSIS
     Route: 048
     Dates: start: 20140820
  7. AUBAGIO [Suspect]
     Active Substance: TERIFLUNOMIDE
     Indication: MULTIPLE SCLEROSIS
     Route: 048
     Dates: start: 20130820
  8. AUBAGIO [Suspect]
     Active Substance: TERIFLUNOMIDE
     Indication: MULTIPLE SCLEROSIS
     Route: 048
     Dates: start: 20130820
  9. AMBIEN [Concomitant]
     Active Substance: ZOLPIDEM TARTRATE
     Dosage: STRENGTH: 5 MG
  10. PRILOSEC [Concomitant]
     Active Substance: OMEPRAZOLE MAGNESIUM
     Dosage: STRENGTH: 40 MG

REACTIONS (10)
  - Pyrexia [Unknown]
  - Therapeutic response unexpected [Unknown]
  - Hypoaesthesia [Not Recovered/Not Resolved]
  - Gastroenteritis viral [Unknown]
  - Paraesthesia [Unknown]
  - Oropharyngeal pain [Unknown]
  - Liver function test abnormal [Unknown]
  - Post lumbar puncture syndrome [Unknown]
  - Alopecia [Unknown]
  - Cough [Unknown]

NARRATIVE: CASE EVENT DATE: 201309
